FAERS Safety Report 7768693-9 (Version None)
Quarter: 2011Q3

REPORT INFORMATION
  Report Type: 
  Country: None (occurrence: None)
  Receive Date: 20110922
  Receipt Date: 20100412
  Transmission Date: 20111222
  Serious: Yes (Hospitalization)
  Sender: FDA-Public Use
  Company Number: US-ASTRAZENECA-2009UW16545

PATIENT
  Age: 13606 Day
  Sex: Male

DRUGS (5)
  1. SEROQUEL [Suspect]
     Indication: BIPOLAR DISORDER
     Route: 048
     Dates: start: 20050415
  2. WELLBUTRIN [Concomitant]
     Dates: start: 20050415
  3. LOVASTATIN [Concomitant]
     Indication: BLOOD CHOLESTEROL INCREASED
     Dates: start: 20080311
  4. DEPAKOTE [Concomitant]
     Dosage: 1000-1500MG
     Dates: start: 20050415
  5. BUPROPION HCL [Concomitant]
     Indication: BIPOLAR DISORDER
     Dates: start: 20080311

REACTIONS (1)
  - DIABETES MELLITUS [None]
